FAERS Safety Report 6856098-4 (Version None)
Quarter: 2010Q3

REPORT INFORMATION
  Report Type: 
  Country: None (occurrence: None)
  Receive Date: 20100715
  Receipt Date: 20100715
  Transmission Date: 20110219
  Serious: Yes (Other)
  Sender: FDA-Public Use
  Company Number: None

PATIENT
  Sex: Female
  Weight: 99.7913 kg

DRUGS (1)
  1. CYMBALTA [Suspect]
     Indication: MIGRAINE
     Dosage: 60 MG QD PO
     Route: 048
     Dates: start: 20060801

REACTIONS (3)
  - AGITATION [None]
  - HEARING IMPAIRED [None]
  - PARAESTHESIA [None]
